FAERS Safety Report 5379016-7 (Version None)
Quarter: 2007Q2

REPORT INFORMATION
  Report Type: 
  Country: None (occurrence: None)
  Receive Date: 20070626
  Receipt Date: 20070612
  Transmission Date: 20071010
  Serious: Yes (Hospitalization)
  Sender: FDA-Public Use
  Company Number: THYM-11413

PATIENT
  Age: 31 Year
  Sex: Female
  Weight: 61 kg

DRUGS (5)
  1. THYMOGLOBULIN [Suspect]
     Indication: PANCREAS TRANSPLANT
     Dosage: 100 MG QD IV
     Route: 042
     Dates: start: 20070415, end: 20070419
  2. THYMOGLOBULIN [Suspect]
     Indication: RENAL TRANSPLANT
     Dosage: 100 MG QD IV
     Route: 042
     Dates: start: 20070415, end: 20070419
  3. PROGRAF [Concomitant]
  4. GANCICLOVIR [Concomitant]
  5. CELLCEPT [Concomitant]

REACTIONS (4)
  - DIALYSIS [None]
  - KIDNEY TRANSPLANT REJECTION [None]
  - NO THERAPEUTIC RESPONSE [None]
  - THROMBOTIC MICROANGIOPATHY [None]
